FAERS Safety Report 17720035 (Version 2)
Quarter: 2020Q2

REPORT INFORMATION
  Report Type: Spontaneous
  Country: CA (occurrence: CA)
  Receive Date: 20200428
  Receipt Date: 20200616
  Transmission Date: 20200714
  Serious: Yes (Other)
  Sender: FDA-Public Use
  Company Number: CA-VIFOR (INTERNATIONAL) INC.-VIT-2020-05509

PATIENT
  Age: 49 Year
  Sex: Female

DRUGS (1)
  1. VELTASSA [Suspect]
     Active Substance: PATIROMER
     Indication: ANAEMIA
     Route: 042

REACTIONS (8)
  - Rash erythematous [Unknown]
  - Off label use [Unknown]
  - Syncope [Unknown]
  - Cold sweat [Unknown]
  - Pruritus [Recovered/Resolved]
  - Erythema [Unknown]
  - Pallor [Unknown]
  - Dizziness [Unknown]

NARRATIVE: CASE EVENT DATE: 20191018
